FAERS Safety Report 8390075-X (Version None)
Quarter: 2012Q2

REPORT INFORMATION
  Report Type: 
  Country: None (occurrence: None)
  Receive Date: 20120529
  Receipt Date: 20120522
  Transmission Date: 20120825
  Serious: Yes (Other)
  Sender: FDA-Public Use
  Company Number: PHHY2012DE044114

PATIENT

DRUGS (1)
  1. CLOZAPINE [Suspect]
     Indication: MENTAL DISORDER

REACTIONS (1)
  - GASTROINTESTINAL CARCINOMA [None]
